FAERS Safety Report 20068597 (Version 2)
Quarter: 2021Q4

REPORT INFORMATION
  Report Type: Spontaneous
  Country: CH (occurrence: CH)
  Receive Date: 20211115
  Receipt Date: 20211123
  Transmission Date: 20220303
  Serious: No
  Sender: FDA-Public Use
  Company Number: CH-BAYER-2021A244481

PATIENT
  Age: 77 Year
  Sex: Male
  Weight: 87 kg

DRUGS (2)
  1. JIVI [Suspect]
     Active Substance: DAMOCTOCOG ALFA PEGOL
     Indication: Factor VIII deficiency
     Dosage: CONVERSION FROM KOVALTRY TO JIVI (33 IU/KG)
     Dates: start: 20210930, end: 20210930
  2. JIVI [Suspect]
     Active Substance: DAMOCTOCOG ALFA PEGOL
     Indication: Haemorrhage prophylaxis
     Dosage: 3000 IU
     Dates: start: 20211013, end: 20211013

REACTIONS (2)
  - Coagulation factor VIII level decreased [None]
  - Anti-polyethylene glycol antibody present [None]

NARRATIVE: CASE EVENT DATE: 20210930
